FAERS Safety Report 25976785 (Version 1)
Quarter: 2025Q4

REPORT INFORMATION
  Report Type: Spontaneous
  Country: CN (occurrence: CN)
  Receive Date: 20251029
  Receipt Date: 20251029
  Transmission Date: 20260118
  Serious: Yes (Other)
  Sender: BEIGENE
  Company Number: CN-BEIGENE-BGN-2025-018374

PATIENT
  Age: 87 Year

DRUGS (14)
  1. TISLELIZUMAB [Suspect]
     Active Substance: TISLELIZUMAB
     Indication: Squamous cell carcinoma of the oral cavity
     Dosage: UNK
  2. TISLELIZUMAB [Suspect]
     Active Substance: TISLELIZUMAB
     Dosage: UNK
  3. TISLELIZUMAB [Suspect]
     Active Substance: TISLELIZUMAB
     Dosage: 200 MILLIGRAM (D1) Q3WK
     Route: 041
  4. TISLELIZUMAB [Suspect]
     Active Substance: TISLELIZUMAB
     Dosage: 200 MILLIGRAM (D1) Q3WK
  5. TISLELIZUMAB [Suspect]
     Active Substance: TISLELIZUMAB
     Dosage: 200 MILLIGRAM (D1) Q3WK
     Route: 041
  6. TISLELIZUMAB [Suspect]
     Active Substance: TISLELIZUMAB
     Dosage: 200 MILLIGRAM (D1) Q3WK
  7. CAPECITABINE [Suspect]
     Active Substance: CAPECITABINE
     Indication: Squamous cell carcinoma of the oral cavity
     Dosage: UNK
  8. CAPECITABINE [Suspect]
     Active Substance: CAPECITABINE
     Dosage: 1.5 GRAM, BID (Q1-14, Q21D)
     Route: 048
  9. CAPECITABINE [Suspect]
     Active Substance: CAPECITABINE
     Dosage: 1.5 GRAM, BID (Q1-14, Q21D)
  10. ERBITUX [Suspect]
     Active Substance: CETUXIMAB
     Indication: Squamous cell carcinoma of the oral cavity
     Dosage: UNK
  11. ERBITUX [Suspect]
     Active Substance: CETUXIMAB
     Dosage: 400 MILLIGRAM (D1 D8) Q3WK
  12. ERBITUX [Suspect]
     Active Substance: CETUXIMAB
     Dosage: 400 MILLIGRAM (D1 D8) Q3WK
     Route: 041
  13. ERBITUX [Suspect]
     Active Substance: CETUXIMAB
     Dosage: 400 MILLIGRAM
  14. ERBITUX [Suspect]
     Active Substance: CETUXIMAB
     Dosage: 400 MILLIGRAM
     Route: 041

REACTIONS (1)
  - Transaminases increased [Recovering/Resolving]
